FAERS Safety Report 5520360-8 (Version None)
Quarter: 2007Q4

REPORT INFORMATION
  Report Type: 
  Country: None (occurrence: None)
  Receive Date: 20071119
  Receipt Date: 20071109
  Transmission Date: 20080405
  Serious: Yes (Other)
  Sender: FDA-Public Use
  Company Number: PHBS2007BR18773

PATIENT
  Age: 56 Year
  Sex: Male
  Weight: 97 kg

DRUGS (6)
  1. STARFORM [Suspect]
     Indication: DIABETES MELLITUS
     Dosage: 120MG NATEGLINIDE/500 MG METFORMIN
     Route: 048
     Dates: start: 20030101
  2. STARFORM [Suspect]
     Dosage: 60MG NATEGLINIDE, 500 MG METFORMIN
  3. ATENOLOL [Concomitant]
     Indication: HYPERTENSION
     Dosage: 100 MG, QD
     Route: 048
     Dates: start: 19810101
  4. MICARDIS [Concomitant]
     Indication: HYPERTENSION
     Dosage: 80 MG, QD
     Route: 048
     Dates: start: 20070801
  5. AMLODIPINE BESYLATE [Concomitant]
     Indication: HYPERTENSION
     Dosage: 10 MG, QD
     Route: 048
     Dates: start: 20070801
  6. HYDROCHLOROTHIAZIDE [Concomitant]
     Dosage: 20 MG, QD
     Route: 048

REACTIONS (8)
  - BLOOD GLUCOSE INCREASED [None]
  - BLOOD PRESSURE INCREASED [None]
  - BLOOD URIC ACID ABNORMAL [None]
  - HYPERHIDROSIS [None]
  - LISTLESS [None]
  - MALAISE [None]
  - NIGHTMARE [None]
  - SOMNOLENCE [None]
